FAERS Safety Report 13392352 (Version 1)
Quarter: 2017Q1

REPORT INFORMATION
  Report Type: Report from Study
  Country: US (occurrence: US)
  Receive Date: 20170331
  Receipt Date: 20170331
  Transmission Date: 20170429
  Serious: Yes (Other)
  Sender: FDA-Public Use
  Company Number: US-009507513-1701USA011229

PATIENT
  Age: 61 Year
  Sex: Female

DRUGS (6)
  1. PEMBROLIZUMAB. [Suspect]
     Active Substance: PEMBROLIZUMAB
     Indication: LUNG NEOPLASM MALIGNANT
     Dosage: UNK, Q3W
     Route: 042
     Dates: start: 20161230
  2. SYNTHROID [Concomitant]
     Active Substance: LEVOTHYROXINE SODIUM
     Route: 048
  3. CALCIUM (UNSPECIFIED) [Concomitant]
     Active Substance: CALCIUM
  4. FOSAMAX [Concomitant]
     Active Substance: ALENDRONATE SODIUM
     Route: 048
  5. TURMERIC [Concomitant]
     Active Substance: TURMERIC
  6. XANAX [Concomitant]
     Active Substance: ALPRAZOLAM

REACTIONS (7)
  - Carcinoembryonic antigen increased [Unknown]
  - Cough [Not Recovered/Not Resolved]
  - Back pain [Unknown]
  - Arthralgia [Unknown]
  - Wheezing [Not Recovered/Not Resolved]
  - Sleep disorder [Unknown]
  - Pneumonitis [Unknown]

NARRATIVE: CASE EVENT DATE: 20170120
